FAERS Safety Report 6530864-7 (Version None)
Quarter: 2010Q1

REPORT INFORMATION
  Report Type: 
  Country: None (occurrence: None)
  Receive Date: 20100108
  Receipt Date: 20090427
  Transmission Date: 20100710
  Serious: No
  Sender: FDA-Public Use
  Company Number: A0779937A

PATIENT
  Age: 52 Year
  Sex: Male

DRUGS (4)
  1. LOVAZA [Suspect]
     Indication: BLOOD CHOLESTEROL INCREASED
     Dosage: 1G FOUR TIMES PER DAY
     Route: 048
     Dates: start: 20081101
  2. DIOVAN [Concomitant]
  3. TIMOLOL MALEATE [Concomitant]
  4. TRICOR [Concomitant]

REACTIONS (1)
  - THERAPEUTIC RESPONSE UNEXPECTED [None]
